FAERS Safety Report 9027051 (Version 8)
Quarter: 2018Q4

REPORT INFORMATION
  Report Type: Report from Study
  Country: GB (occurrence: GB)
  Receive Date: 20130123
  Receipt Date: 20181108
  Transmission Date: 20190205
  Serious: Yes (Hospitalization)
  Sender: FDA-Public Use
  Company Number: GB-PFIZER INC-2012255843

PATIENT
  Age: 66 Year
  Sex: Male

DRUGS (13)
  1. MORPHINE SULFATE. [Suspect]
     Active Substance: MORPHINE SULFATE
     Dosage: 100 MG, 1X/DAY
     Route: 048
     Dates: start: 20121001
  2. ORAMORPH [Suspect]
     Active Substance: MORPHINE SULFATE
     Dosage: UNK, AS NEEDED
     Route: 048
     Dates: start: 20120918
  3. HYDROCORTISONE SODIUM SUCCINATE [Concomitant]
     Active Substance: HYDROCORTISONE SODIUM SUCCINATE
     Dosage: 2-4 MG A DAY (1 IN 1 D)
     Route: 048
     Dates: start: 20121011
  4. CISPLATIN. [Suspect]
     Active Substance: CISPLATIN
     Dosage: 135 MG, UNK
     Route: 042
     Dates: start: 20120926, end: 20121121
  5. BUCCALSONE [Concomitant]
     Dosage: 2-4 MG A DAY, 1X/DAY
     Route: 048
     Dates: start: 20121011
  6. PREDNISOLONE. [Concomitant]
     Active Substance: PREDNISOLONE
     Dosage: 7.5 MG, 1X/DAY
     Route: 048
     Dates: start: 201009
  7. SUNITINIB MALATE. [Suspect]
     Active Substance: SUNITINIB MALATE
     Indication: TRANSITIONAL CELL CARCINOMA
     Dosage: 25 MG, UNK
     Route: 065
     Dates: start: 20120927, end: 20120929
  8. TAMSULOSIN [Concomitant]
     Active Substance: TAMSULOSIN
     Dosage: 400 MG, 1X/DAY
     Route: 048
     Dates: start: 20120401
  9. PARACETAMOL [Concomitant]
     Active Substance: ACETAMINOPHEN
     Dosage: 4 G, 1X/DAY
     Route: 048
     Dates: start: 201206
  10. MOVICOL [Concomitant]
     Active Substance: POLYETHYLENE GLYCOL 3350\POTASSIUM CHLORIDE\SODIUM BICARBONATE\SODIUM CHLORIDE
     Dosage: UNK
     Route: 048
     Dates: start: 20121010
  11. GEMCITABINE [Suspect]
     Active Substance: GEMCITABINE\GEMCITABINE HYDROCHLORIDE
     Dosage: 1900 MG, UNK
     Route: 054
     Dates: start: 20120926, end: 20121128
  12. DULCOLAX NOS [Concomitant]
     Active Substance: BISACODYL OR DOCUSATE SODIUM
     Dosage: UNK
     Route: 048
     Dates: start: 201206
  13. METOCLOPRAMIDE. [Concomitant]
     Active Substance: METOCLOPRAMIDE
     Dosage: 30-60 MG A DAY, 1X/DAY
     Route: 048
     Dates: start: 20120921

REACTIONS (3)
  - Vomiting [Recovered/Resolved]
  - Nausea [Not Recovered/Not Resolved]
  - Deep vein thrombosis [Not Recovered/Not Resolved]

NARRATIVE: CASE EVENT DATE: 20121011
